FAERS Safety Report 5656500-X (Version None)
Quarter: 2008Q1

REPORT INFORMATION
  Report Type: 
  Country: None (occurrence: None)
  Receive Date: 20080309
  Receipt Date: 20080123
  Transmission Date: 20080703
  Serious: No
  Sender: FDA-Public Use
  Company Number: US-BAYER-200810409BCC

PATIENT
  Age: 52 Year
  Sex: Female
  Weight: 61 kg

DRUGS (2)
  1. ALEVE COLD AND SINUS [Suspect]
     Route: 048
     Dates: start: 20080123
  2. VITAMINS [Concomitant]

REACTIONS (3)
  - FATIGUE [None]
  - HEART RATE INCREASED [None]
  - LETHARGY [None]
